FAERS Safety Report 24066517 (Version 1)
Quarter: 2024Q3

REPORT INFORMATION
  Report Type: Spontaneous
  Country: US (occurrence: None)
  Receive Date: 20240708
  Receipt Date: 20240708
  Transmission Date: 20241017
  Serious: Yes (Other)
  Sender: Public
  Company Number: None

PATIENT
  Age: 39 Year
  Sex: Female
  Weight: 58.5 kg

DRUGS (5)
  1. AMPHETAMINE\DEXTROAMPHETAMINE [Suspect]
     Active Substance: AMPHETAMINE\DEXTROAMPHETAMINE
     Indication: Attention deficit hyperactivity disorder
     Dosage: 1 CAPSULE ORAL?
     Route: 048
     Dates: start: 20240703, end: 20240707
  2. UNSPECIFIED INGREDIENT [Concomitant]
     Active Substance: UNSPECIFIED INGREDIENT
  3. women^s multi vitamin [Concomitant]
  4. FISH OIL [Concomitant]
     Active Substance: FISH OIL
  5. WEST WHEAT GRASS [Concomitant]
     Active Substance: PASCOPYRUM SMITHII POLLEN

REACTIONS (7)
  - Arthralgia [None]
  - Muscle tightness [None]
  - Insomnia [None]
  - Skin tightness [None]
  - Pruritus [None]
  - Paraesthesia [None]
  - Abdominal distension [None]

NARRATIVE: CASE EVENT DATE: 20240703
